FAERS Safety Report 5665581-9 (Version None)
Quarter: 2008Q1

REPORT INFORMATION
  Report Type: 
  Country: None (occurrence: None)
  Receive Date: 20080314
  Receipt Date: 20071210
  Transmission Date: 20080703
  Serious: No
  Sender: FDA-Public Use
  Company Number: US-ABBOTT-07P-163-0428499-00

PATIENT

DRUGS (2)
  1. HUMIRA [Suspect]
     Indication: RHEUMATOID ARTHRITIS
     Route: 058
  2. HUMIRA [Suspect]
     Dosage: PRE FILLED SYRINGE
     Route: 058
     Dates: start: 20050101

REACTIONS (3)
  - ACCIDENTAL EXPOSURE [None]
  - ARTHRALGIA [None]
  - PAIN IN EXTREMITY [None]
